FAERS Safety Report 23986772 (Version 1)
Quarter: 2024Q2

REPORT INFORMATION
  Report Type: Spontaneous
  Country: CA (occurrence: CA)
  Receive Date: 20240618
  Receipt Date: 20240618
  Transmission Date: 20240716
  Serious: Yes (Other)
  Sender: FDA-Public Use
  Company Number: CA-SANDOZ-SDZ2024CA058199

PATIENT
  Age: 72 Year
  Sex: Male

DRUGS (1)
  1. DEFERASIROX [Suspect]
     Active Substance: DEFERASIROX
     Indication: Product used for unknown indication
     Dosage: 3 DOSAGE FORM, QD (3 DF, QD)
     Route: 048

REACTIONS (2)
  - Dry eye [Unknown]
  - Pneumonia [Unknown]
